FAERS Safety Report 18322462 (Version 1)
Quarter: 2020Q3

REPORT INFORMATION
  Report Type: Spontaneous
  Country: FR (occurrence: FR)
  Receive Date: 20200929
  Receipt Date: 20200929
  Transmission Date: 20201103
  Serious: Yes (Hospitalization)
  Sender: FDA-Public Use
  Company Number: FR-TEVA-2020-FR-1831288

PATIENT
  Age: 75 Year
  Sex: Male
  Weight: 60 kg

DRUGS (14)
  1. LIPTRUZET [Concomitant]
     Active Substance: ATORVASTATIN CALCIUM\EZETIMIBE
     Dosage: EXTENDED?RELEASE
  2. LASILIX 40 MG, COMPRIME SECABLE [Concomitant]
     Active Substance: FUROSEMIDE
     Dosage: SCORED
  3. RAMIPRIL. [Concomitant]
     Active Substance: RAMIPRIL
  4. NOVONORM 1 MG, COMPRIME [Concomitant]
     Active Substance: REPAGLINIDE
  5. OMEPRAZOLE. [Concomitant]
     Active Substance: OMEPRAZOLE
  6. TENORMINE [Concomitant]
     Active Substance: ATENOLOL
  7. AMLODIPINE [Concomitant]
     Active Substance: AMLODIPINE BESYLATE
  8. BACTRIM [Concomitant]
     Active Substance: SULFAMETHOXAZOLE\TRIMETHOPRIM
  9. OMEXEL L.P. 0,4 MG, COMPRIME PELLICULE A LIBERATION PROLONGEE [Concomitant]
     Active Substance: TAMSULOSIN HYDROCHLORIDE
  10. PREDNISONE. [Concomitant]
     Active Substance: PREDNISONE
  11. KARDEGIC [Concomitant]
     Active Substance: ASPIRIN DL-LYSINE
     Dosage: IN SACHET?DOSE
  12. FLUOROURACILE [Suspect]
     Active Substance: FLUOROURACIL
     Indication: SQUAMOUS CELL CARCINOMA
     Dosage: 1000MG/M2
     Route: 041
     Dates: start: 20200818, end: 20200820
  13. CERTICAN [Concomitant]
     Active Substance: EVEROLIMUS
  14. EUPRESSYL [Concomitant]
     Active Substance: URAPIDIL

REACTIONS (1)
  - Hyperammonaemic encephalopathy [Recovering/Resolving]

NARRATIVE: CASE EVENT DATE: 20200819
